FAERS Safety Report 7906396-8 (Version None)
Quarter: 2011Q4

REPORT INFORMATION
  Report Type: 
  Country: None (occurrence: None)
  Receive Date: 20111110
  Receipt Date: 20111107
  Transmission Date: 20120403
  Serious: Yes (Other)
  Sender: FDA-Public Use
  Company Number: DE-PFIZER INC-2011272444

PATIENT
  Age: 24 Year
  Sex: Male

DRUGS (3)
  1. SEROQUEL [Suspect]
     Dosage: UNK
     Dates: end: 20111001
  2. LYRICA [Suspect]
     Dosage: UNK
     Dates: start: 20111001
  3. RISPERDAL [Suspect]
     Dosage: UNK
     Dates: end: 20111001

REACTIONS (1)
  - INTRAOCULAR PRESSURE INCREASED [None]
